FAERS Safety Report 14993911 (Version 10)
Quarter: 2019Q1

REPORT INFORMATION
  Report Type: Report from Study
  Country: FR (occurrence: FR)
  Receive Date: 20180611
  Receipt Date: 20190122
  Transmission Date: 20190417
  Serious: Yes (Death, Life-Threatening, Hospitalization)
  Sender: FDA-Public Use
  Company Number: FR-ROCHE-2135760

PATIENT
  Age: 74 Year
  Sex: Male
  Weight: 56 kg

DRUGS (21)
  1. NEUPRO [Concomitant]
     Active Substance: ROTIGOTINE
     Route: 065
     Dates: start: 201101
  2. GUTRON [Concomitant]
     Active Substance: MIDODRINE
     Indication: HYPOTENSION
     Route: 065
     Dates: start: 201806
  3. GRANOCYTE [Concomitant]
     Active Substance: LENOGRASTIM
     Indication: NEUTROPENIA
     Route: 065
     Dates: start: 20180517, end: 20180523
  4. OBINUTUZUMAB. [Suspect]
     Active Substance: OBINUTUZUMAB
     Indication: MANTLE CELL LYMPHOMA
     Dosage: ON DAYS 1, 8 AND 15 OF THE FIRST CYCLE ONLY AND ON DAY 1 OF EACH SUBSEQUENT CYCLE (CYCLE LENGTH 21 D
     Route: 042
     Dates: start: 20180420, end: 20180531
  5. MODOPAR [Concomitant]
     Active Substance: BENSERAZIDE HYDROCHLORIDE\LEVODOPA
     Route: 065
     Dates: start: 201101
  6. LASILIX [Concomitant]
     Active Substance: FUROSEMIDE
     Indication: ACUTE PULMONARY OEDEMA
     Route: 065
     Dates: start: 201805, end: 201805
  7. NORMACOL [Concomitant]
     Active Substance: HERBALS\KARAYA GUM
     Indication: CONSTIPATION
     Route: 065
     Dates: start: 201806, end: 201806
  8. TAZOCILLINE [Concomitant]
     Active Substance: PIPERACILLIN SODIUM\TAZOBACTAM SODIUM
     Indication: PYREXIA
     Route: 065
     Dates: start: 20180517, end: 20180518
  9. TAZOCILLINE [Concomitant]
     Active Substance: PIPERACILLIN SODIUM\TAZOBACTAM SODIUM
     Indication: SEPSIS
     Route: 065
     Dates: start: 20180518, end: 20180525
  10. AZILECT [Concomitant]
     Active Substance: RASAGILINE MESYLATE
     Route: 065
     Dates: start: 201101
  11. MELATONINE [Concomitant]
     Active Substance: MELATONIN
     Route: 065
     Dates: start: 201803
  12. ARANESP [Concomitant]
     Active Substance: DARBEPOETIN ALFA
     Indication: ANAEMIA
     Route: 065
     Dates: start: 20180511
  13. SERESTA [Concomitant]
     Active Substance: OXAZEPAM
     Indication: ANXIETY
     Route: 065
     Dates: start: 201806
  14. SINEMET LP [Concomitant]
     Active Substance: CARBIDOPA\LEVODOPA
     Route: 065
     Dates: start: 201803
  15. MIANSERINE [Concomitant]
     Active Substance: MIANSERIN HYDROCHLORIDE
     Route: 065
     Dates: start: 201803
  16. LASILIX [Concomitant]
     Active Substance: FUROSEMIDE
     Indication: OEDEMA PERIPHERAL
     Route: 065
     Dates: start: 20180504
  17. CORDARONE [Concomitant]
     Active Substance: AMIODARONE HYDROCHLORIDE
     Indication: ATRIAL FIBRILLATION
     Route: 065
     Dates: start: 201805, end: 20180522
  18. PRIMPERAN [Concomitant]
     Active Substance: METOCLOPRAMIDE HYDROCHLORIDE
     Indication: PROPHYLAXIS
     Route: 065
     Dates: start: 201806
  19. ATEZOLIZUMAB. [Suspect]
     Active Substance: ATEZOLIZUMAB
     Indication: MANTLE CELL LYMPHOMA
     Dosage: MOST RECENT DOSE ON 11/MAY/2018 AT 13:22
     Route: 042
     Dates: start: 20180420, end: 20180531
  20. AUGMENTIN [Concomitant]
     Active Substance: AMOXICILLIN\CLAVULANATE POTASSIUM
     Indication: PYREXIA
     Route: 065
     Dates: start: 20180427, end: 20180503
  21. LOVENOX [Concomitant]
     Active Substance: ENOXAPARIN SODIUM
     Route: 065
     Dates: start: 20180604

REACTIONS (2)
  - Cardiac failure [Not Recovered/Not Resolved]
  - Ascites [Recovered/Resolved]

NARRATIVE: CASE EVENT DATE: 20180531
